FAERS Safety Report 19763794 (Version 2)
Quarter: 2021Q4

REPORT INFORMATION
  Report Type: Report from Study
  Country: DE (occurrence: DE)
  Receive Date: 20210830
  Receipt Date: 20211230
  Transmission Date: 20220303
  Serious: Yes (Other)
  Sender: FDA-Public Use
  Company Number: DE-002147023-NVSC2021DE025985

PATIENT
  Age: 78 Year
  Sex: Female
  Weight: 90 kg

DRUGS (27)
  1. CIPROFLOXACIN [Suspect]
     Active Substance: CIPROFLOXACIN
     Indication: Product used for unknown indication
     Dosage: 1000 MILLIGRAM, QD (START DATE:09-MAY-2019)
     Route: 065
     Dates: end: 20190513
  2. RUXOLITINIB [Suspect]
     Active Substance: RUXOLITINIB
     Indication: Primary myelofibrosis
     Dosage: 30 MG, BID (START DATE:26-JUN-2019)
     Route: 048
     Dates: end: 20200405
  3. RUXOLITINIB [Suspect]
     Active Substance: RUXOLITINIB
     Dosage: 20 MG, BID (START DATE:07-JUN-2019 )
     Route: 048
     Dates: end: 20190618
  4. RUXOLITINIB [Suspect]
     Active Substance: RUXOLITINIB
     Dosage: 25 MG, BID (START DATE:19-JUN-2019)
     Route: 048
     Dates: end: 20190625
  5. RUXOLITINIB [Suspect]
     Active Substance: RUXOLITINIB
     Dosage: 10 MG, BID (START DATE:13-MAY-2019)
     Route: 048
     Dates: end: 20190521
  6. RUXOLITINIB [Suspect]
     Active Substance: RUXOLITINIB
     Dosage: 20 MG, BID (START DATE:14-FEB-2019)
     Route: 048
     Dates: end: 20190512
  7. RUXOLITINIB [Suspect]
     Active Substance: RUXOLITINIB
     Dosage: 40 MG, BID (START DATE:30-JAN-2019)
     Route: 048
  8. RUXOLITINIB [Suspect]
     Active Substance: RUXOLITINIB
     Dosage: 20 MG, BID (START DATE:06-APR-2020)
     Route: 048
     Dates: end: 20200527
  9. RUXOLITINIB [Suspect]
     Active Substance: RUXOLITINIB
     Dosage: 15 MG, BID (START DATE:22-MAY-2019)
     Route: 048
     Dates: end: 20190606
  10. RUXOLITINIB [Suspect]
     Active Substance: RUXOLITINIB
     Dosage: 40 MG, BID (START DATE:30-JAN-2019)
     Route: 048
     Dates: end: 20190213
  11. ELIQUIS [Concomitant]
     Active Substance: APIXABAN
     Indication: Product used for unknown indication
     Dosage: 5 MILLIGRAM (START DATE:19-FEB-2020)
     Route: 065
  12. AMLODIPINE [Concomitant]
     Active Substance: AMLODIPINE BESYLATE
     Indication: Product used for unknown indication
     Dosage: 5 MILLIGRAM (START DATE:15-JAN-2019)
     Route: 065
     Dates: end: 20190901
  13. HYDROCHLOROTHIAZIDE\VALSARTAN [Concomitant]
     Active Substance: HYDROCHLOROTHIAZIDE\VALSARTAN
     Indication: Product used for unknown indication
     Dosage: 160/12.5 MG (START DATE:28-SEP-2018)
     Route: 065
     Dates: end: 20190607
  14. DIGITOXIN [Concomitant]
     Active Substance: DIGITOXIN
     Indication: Product used for unknown indication
     Dosage: 0.07 UNK (START DATE:26-MAY-2020)
     Route: 065
     Dates: end: 20200701
  15. PANTOZOL [Concomitant]
     Active Substance: PANTOPRAZOLE SODIUM
     Indication: Product used for unknown indication
     Dosage: 20 MILLIGRAM (START DATE:05-DEC-2019)
     Route: 065
  16. DABIGATRAN [Concomitant]
     Active Substance: DABIGATRAN
     Indication: Product used for unknown indication
     Dosage: 300 MILLIGRAM (START DATE:02-SEP-2019)
     Route: 065
     Dates: end: 20200210
  17. METOPROLOL [Concomitant]
     Active Substance: METOPROLOL
     Indication: Product used for unknown indication
     Dosage: 23.74 MILLIGRAM (START DATE:26-MAR-2020)
     Route: 065
  18. HYDROXYUREA [Concomitant]
     Active Substance: HYDROXYUREA
     Indication: Product used for unknown indication
     Dosage: 500 MILLIGRAM (STRAT DATE:23-AUG-2018)
     Route: 065
     Dates: end: 20190214
  19. BISOPROLOL [Concomitant]
     Active Substance: BISOPROLOL
     Indication: Product used for unknown indication
     Dosage: 2.5 MILLIGRAM (START DATE:02-SEP-2019)
     Route: 065
     Dates: end: 20200326
  20. FUROSEMIDE [Concomitant]
     Active Substance: FUROSEMIDE
     Indication: Product used for unknown indication
     Dosage: 250 MILLIGRAM (START DATE:26-MAY-2020)
     Route: 065
     Dates: end: 20200701
  21. CANDESARTAN [Concomitant]
     Active Substance: CANDESARTAN
     Indication: Product used for unknown indication
     Dosage: 16 MILLIGRAM (START DATE:07-JUN-2019)
     Route: 065
     Dates: end: 20200701
  22. EXJADE [Concomitant]
     Active Substance: DEFERASIROX
     Indication: Product used for unknown indication
     Dosage: 90 MILLIGRAM (START DATE:15-OCT-2019)
     Route: 065
     Dates: end: 20200110
  23. NALOXONE HYDROCHLORIDE\TILIDINE HYDROCHLORIDE [Concomitant]
     Active Substance: NALOXONE HYDROCHLORIDE\TILIDINE HYDROCHLORIDE
     Indication: Product used for unknown indication
     Dosage: 2X 50/4 (START DATE:26-MAY-2020)
     Route: 065
     Dates: end: 20200730
  24. LEVOFLOXACIN [Concomitant]
     Active Substance: LEVOFLOXACIN
     Indication: Product used for unknown indication
     Dosage: 500 MILLIGRAM (START DATE:31-MAR-2020)
     Route: 065
     Dates: end: 20200406
  25. XIPAMIDE [Concomitant]
     Active Substance: XIPAMIDE
     Indication: Product used for unknown indication
     Dosage: 20 MILLIGRAM (START DATE:26-MAY-2020)
     Route: 065
  26. MCP [Concomitant]
     Active Substance: METOCLOPRAMIDE HYDROCHLORIDE
     Indication: Product used for unknown indication
     Dosage: 10 MILLIGRAM, PRN (START DATE:05-DEC-2019)
     Route: 065
  27. SPIRONOLACTONE [Concomitant]
     Active Substance: SPIRONOLACTONE
     Indication: Product used for unknown indication
     Dosage: 25 MILLIGRAM (START DATE:26-MAY-2020)
     Route: 065
     Dates: end: 20200701

REACTIONS (26)
  - Haptoglobin decreased [Not Recovered/Not Resolved]
  - White blood cell count increased [Recovered/Resolved]
  - Anaemia [Not Recovered/Not Resolved]
  - Dyspnoea [Recovered/Resolved]
  - Folate deficiency [Recovered/Resolved]
  - Gamma-glutamyltransferase increased [Not Recovered/Not Resolved]
  - Aspartate aminotransferase increased [Recovered/Resolved]
  - Pyrexia [Recovered/Resolved]
  - Blood thyroid stimulating hormone decreased [Recovered/Resolved]
  - Blood bilirubin increased [Not Recovered/Not Resolved]
  - C-reactive protein increased [Not Recovered/Not Resolved]
  - Neutrophil count increased [Recovered/Resolved]
  - Oedema peripheral [Recovered/Resolved]
  - Lymphocyte count decreased [Recovered/Resolved]
  - Bone pain [Recovered/Resolved]
  - Alanine aminotransferase increased [Recovered/Resolved]
  - Reticulocyte count increased [Not Recovered/Not Resolved]
  - Epistaxis [Recovered/Resolved]
  - Viral infection [Recovered/Resolved]
  - Blood urea increased [Recovered/Resolved]
  - Abdominal discomfort [Recovered/Resolved]
  - Bronchitis [Recovered/Resolved]
  - Blood creatinine increased [Not Recovered/Not Resolved]
  - Dizziness [Recovered/Resolved]
  - Cough [Recovered/Resolved]
  - Faeces discoloured [Recovered/Resolved]

NARRATIVE: CASE EVENT DATE: 20180625
